FAERS Safety Report 20711109 (Version 5)
Quarter: 2022Q2

REPORT INFORMATION
  Report Type: Report from Study
  Country: GB (occurrence: GB)
  Receive Date: 20220414
  Receipt Date: 20220614
  Transmission Date: 20220721
  Serious: Yes (Death, Hospitalization, Congenital Anomaly, Other)
  Sender: FDA-Public Use
  Company Number: GB-JNJFOC-20220428104

PATIENT
  Age: 4 Month
  Sex: Female
  Weight: 3.43 kg

DRUGS (9)
  1. COBICISTAT\DARUNAVIR ETHANOLATE [Suspect]
     Active Substance: COBICISTAT\DARUNAVIR ETHANOLATE
     Indication: HIV infection
     Dosage: 1 DOSAGE FORM, QD (TABLET/CAPSULE)
     Route: 064
  2. PREZCOBIX [Suspect]
     Active Substance: COBICISTAT\DARUNAVIR ETHANOLATE
     Indication: HIV infection
     Dosage: DOSE: 1 TABLET/CAPSULE
     Route: 062
  3. PREZCOBIX [Suspect]
     Active Substance: COBICISTAT\DARUNAVIR ETHANOLATE
     Dosage: DOSE: 1 TABLET/CAPSULE
     Route: 062
  4. DARUNAVIR [Suspect]
     Active Substance: DARUNAVIR
     Indication: HIV infection
     Route: 064
  5. COBICISTAT [Suspect]
     Active Substance: COBICISTAT
     Indication: Product used for unknown indication
     Dosage: 1 DOSAGE FORM, QD
     Route: 064
  6. ABACAVIR SULFATE\LAMIVUDINE [Suspect]
     Active Substance: ABACAVIR SULFATE\LAMIVUDINE
     Indication: HIV infection
     Dosage: PARENT^S DOSE: 1 TABLET/CAPSULE
     Route: 064
  7. RALTEGRAVIR POTASSIUM [Suspect]
     Active Substance: RALTEGRAVIR POTASSIUM
     Indication: Product used for unknown indication
     Dosage: UNK, 1200
     Route: 064
  8. ABACAVIR [Suspect]
     Active Substance: ABACAVIR
     Indication: Product used for unknown indication
     Route: 064
  9. LAMIVUDINE [Suspect]
     Active Substance: LAMIVUDINE
     Indication: HIV infection
     Dosage: 1 DOSAGE FORM, QD
     Route: 064

REACTIONS (8)
  - Foetal growth abnormality [Fatal]
  - Brain injury [Fatal]
  - Gastroschisis [Fatal]
  - Foetal exposure during pregnancy [Fatal]
  - Foetal growth restriction [Fatal]
  - Hydrocephalus [Unknown]
  - Spina bifida [Unknown]
  - Foetal death [Fatal]

NARRATIVE: CASE EVENT DATE: 20190107
